FAERS Safety Report 23617780 (Version 1)
Quarter: 2024Q1

REPORT INFORMATION
  Report Type: Spontaneous
  Country: US (occurrence: US)
  Receive Date: 20240311
  Receipt Date: 20240311
  Transmission Date: 20240410
  Serious: No
  Sender: FDA-Public Use
  Company Number: US-SA-SAC20240311000217

PATIENT
  Sex: Female
  Weight: 58 kg

DRUGS (1)
  1. DUPIXENT [Suspect]
     Active Substance: DUPILUMAB
     Indication: Illness
     Dosage: 300 MG, QOW
     Route: 058

REACTIONS (5)
  - COVID-19 [Recovering/Resolving]
  - Headache [Unknown]
  - Nasal congestion [Recovering/Resolving]
  - Ear congestion [Recovering/Resolving]
  - Polypectomy [Unknown]
